FAERS Safety Report 20672853 (Version 4)
Quarter: 2022Q2

REPORT INFORMATION
  Report Type: Report from Study
  Country: US (occurrence: US)
  Receive Date: 20220405
  Receipt Date: 20220607
  Transmission Date: 20220721
  Serious: No
  Sender: FDA-Public Use
  Company Number: US-NOVARTISTESTPH-NVSC2022US076232

PATIENT
  Sex: Female

DRUGS (2)
  1. ENTRESTO [Suspect]
     Active Substance: SACUBITRIL\VALSARTAN
     Indication: Product used for unknown indication
     Dosage: 1 DOSAGE FORM, BID
     Route: 065
     Dates: start: 20220119
  2. SYNTHROID [Concomitant]
     Active Substance: LEVOTHYROXINE SODIUM
     Indication: Thyroidectomy
     Dosage: UNK
     Route: 065

REACTIONS (9)
  - Abdominal discomfort [Unknown]
  - Abdominal distension [Unknown]
  - Bowel movement irregularity [Unknown]
  - Vision blurred [Unknown]
  - Dry eye [Unknown]
  - Upper-airway cough syndrome [Recovered/Resolved]
  - Hypersensitivity [Recovered/Resolved]
  - Swelling [Unknown]
  - Weight decreased [Unknown]
